FAERS Safety Report 10090384 (Version 1)
Quarter: 2014Q2

REPORT INFORMATION
  Report Type: Report from Study
  Country: US (occurrence: US)
  Receive Date: 20140421
  Receipt Date: 20140421
  Transmission Date: 20141212
  Serious: Yes (Hospitalization)
  Sender: FDA-Public Use
  Company Number: US-SA-2014SA045289

PATIENT
  Age: 63 Year
  Sex: Female

DRUGS (4)
  1. LANTUS SOLOSTAR [Suspect]
     Indication: DIABETES MELLITUS
     Dosage: DOSE:120 UNIT(S)
     Route: 065
  2. LANTUS SOLOSTAR [Suspect]
     Indication: DIABETES MELLITUS
     Dosage: DOSE:140 UNIT(S)
     Route: 065
  3. SOLOSTAR [Concomitant]
     Indication: DEVICE THERAPY
  4. SOLOSTAR [Concomitant]
     Indication: DEVICE THERAPY

REACTIONS (3)
  - Thyroid function test abnormal [Not Recovered/Not Resolved]
  - Blood glucose increased [Not Recovered/Not Resolved]
  - Drug administration error [Unknown]
